FAERS Safety Report 10478746 (Version 8)
Quarter: 2015Q1

REPORT INFORMATION
  Report Type: Spontaneous
  Country: IL (occurrence: IL)
  Receive Date: 20140926
  Receipt Date: 20150116
  Transmission Date: 20150720
  Serious: Yes (Death, Hospitalization, Other)
  Sender: FDA-Public Use
  Company Number: IL-PFIZER INC-2014064314

PATIENT
  Age: 84 Year
  Sex: Female

DRUGS (15)
  1. INLYTA [Suspect]
     Active Substance: AXITINIB
     Dosage: 3 MG, 2X/DAY CONTINUOUS (6 MG DAILY DOSE)
     Route: 048
     Dates: start: 201405, end: 201407
  2. SLOW-K [Concomitant]
     Active Substance: POTASSIUM CHLORIDE
     Dosage: UNK
  3. FUSID [Concomitant]
     Active Substance: FUROSEMIDE
     Dosage: UNK
  4. OMEGA 3 [Concomitant]
     Active Substance: OMEGA-3 FATTY ACIDS
     Dosage: UNK
  5. DIGOXIN. [Concomitant]
     Active Substance: DIGOXIN
     Dosage: UNK
  6. METFORMIN HYDROCHLORIDE. [Concomitant]
     Active Substance: METFORMIN HYDROCHLORIDE
     Dosage: UNK
  7. CARDILOC [Concomitant]
     Active Substance: BISOPROLOL FUMARATE
     Dosage: UNK
  8. SPIRO [Concomitant]
     Dosage: UNK
  9. ALLORIL [Concomitant]
     Dosage: UNK
  10. INLYTA [Suspect]
     Active Substance: AXITINIB
     Dosage: 3 MG, 2X/DAY, COSECUTIVE, CUMULATIVE DOSE HARD TO ESTIMATE
     Route: 048
     Dates: start: 20140728
  11. VASODIP [Concomitant]
     Dosage: UNK
  12. XARELTO [Concomitant]
     Active Substance: RIVAROXABAN
     Dosage: UNK
  13. CREON [Concomitant]
     Active Substance: PANCRELIPASE AMYLASE\PANCRELIPASE LIPASE\PANCRELIPASE PROTEASE
     Dosage: UNK
  14. ROKACET [Concomitant]
     Dosage: UNK
  15. INLYTA [Suspect]
     Active Substance: AXITINIB
     Indication: RENAL CELL CARCINOMA
     Dosage: 5 MG, 2X/DAY CONTINUOUS, CUMULATIVE DOSE WAS HARD TO ESTIMATE
     Route: 048
     Dates: start: 20140226

REACTIONS (30)
  - Dysphonia [Recovering/Resolving]
  - Weight decreased [Not Recovered/Not Resolved]
  - Micturition urgency [Recovering/Resolving]
  - Hepatic function abnormal [Unknown]
  - Blood glucose increased [Not Recovered/Not Resolved]
  - Skin abrasion [Recovered/Resolved]
  - Blood potassium increased [Recovered/Resolved]
  - Renal cell carcinoma [Fatal]
  - Fall [Unknown]
  - Blood sodium decreased [Not Recovered/Not Resolved]
  - Haematoma [Recovered/Resolved]
  - Blood pressure increased [Not Recovered/Not Resolved]
  - Constipation [Recovered/Resolved]
  - Feeling abnormal [Not Recovered/Not Resolved]
  - Nausea [Recovering/Resolving]
  - Disease progression [Fatal]
  - Pain [Recovering/Resolving]
  - Blood albumin decreased [Not Recovered/Not Resolved]
  - Dyspnoea [Recovering/Resolving]
  - Back pain [Recovering/Resolving]
  - Dizziness [Recovering/Resolving]
  - Dry skin [Not Recovered/Not Resolved]
  - Skin exfoliation [Unknown]
  - Blood thyroid stimulating hormone increased [Not Recovered/Not Resolved]
  - Decreased appetite [Not Recovered/Not Resolved]
  - Asthenia [Not Recovered/Not Resolved]
  - Diarrhoea [Recovered/Resolved]
  - Fall [Recovered/Resolved]
  - Abdominal pain [Not Recovered/Not Resolved]
  - Oedema peripheral [Not Recovered/Not Resolved]

NARRATIVE: CASE EVENT DATE: 2014
